FAERS Safety Report 6017238-2 (Version None)
Quarter: 2008Q4

REPORT INFORMATION
  Report Type: 
  Country: None (occurrence: None)
  Receive Date: 20081223
  Receipt Date: 20081211
  Transmission Date: 20090506
  Serious: Yes (Other)
  Sender: FDA-Public Use
  Company Number: GB-JNJFOC-20081005701

PATIENT
  Age: 14 Year
  Sex: Female

DRUGS (6)
  1. REMICADE [Suspect]
     Dosage: TOTAL OF 2 INFUSIONS GIVEN
     Route: 042
  2. REMICADE [Suspect]
     Indication: COLITIS ULCERATIVE
     Route: 042
  3. PREDNISOLONE [Concomitant]
  4. 5-ASA [Concomitant]
  5. FERROUS SULFATE TAB [Concomitant]
  6. MESALAMINE [Concomitant]

REACTIONS (1)
  - CONVULSION [None]
